FAERS Safety Report 7527717-4 (Version None)
Quarter: 2011Q2

REPORT INFORMATION
  Report Type: 
  Country: None (occurrence: None)
  Receive Date: 20110607
  Receipt Date: 20110523
  Transmission Date: 20111010
  Serious: Yes (Life-Threatening, Disabling, Other)
  Sender: FDA-Public Use
  Company Number: US-JNJFOC-20100506593

PATIENT
  Age: 41 Year
  Sex: Female

DRUGS (10)
  1. PREDNISONE [Suspect]
     Indication: DERMATOMYOSITIS
     Route: 048
     Dates: start: 20060501
  2. HYDROCHLOROTHIAZIDE [Concomitant]
     Indication: PRODUCT USED FOR UNKNOWN INDICATION
  3. INFLIXIMAB [Suspect]
     Indication: DERMATOMYOSITIS
     Route: 042
     Dates: start: 20080313, end: 20080821
  4. RITUXAN [Suspect]
     Indication: DERMATOMYOSITIS
     Route: 042
     Dates: start: 20081013
  5. RITUXAN [Suspect]
     Route: 042
     Dates: start: 20070701
  6. FOLATE [Concomitant]
     Indication: PRODUCT USED FOR UNKNOWN INDICATION
  7. METHOTREXATE [Suspect]
     Indication: DERMATOMYOSITIS
     Route: 058
     Dates: start: 20060601
  8. ACTONEL [Concomitant]
     Indication: PRODUCT USED FOR UNKNOWN INDICATION
  9. RITUXAN [Suspect]
     Route: 042
     Dates: start: 20090813
  10. TRAMADOL HCL [Concomitant]
     Indication: PRODUCT USED FOR UNKNOWN INDICATION

REACTIONS (1)
  - PROGRESSIVE MULTIFOCAL LEUKOENCEPHALOPATHY [None]
